FAERS Safety Report 6221759-7 (Version None)
Quarter: 2009Q2

REPORT INFORMATION
  Report Type: 
  Country: None (occurrence: None)
  Receive Date: 20090610
  Receipt Date: 20090528
  Transmission Date: 20091009
  Serious: Yes (Hospitalization)
  Sender: FDA-Public Use
  Company Number: US-ELI_LILLY_AND_COMPANY-US200906000176

PATIENT
  Sex: Female

DRUGS (14)
  1. FORTEO [Suspect]
     Dosage: UNK, UNK
     Dates: start: 20080101, end: 20080301
  2. ACTOS [Concomitant]
  3. ATENOLOL [Concomitant]
  4. BUMEX [Concomitant]
  5. GLYBURIDE [Concomitant]
  6. KEFLEX /00145502/ [Concomitant]
  7. LASIX [Concomitant]
  8. LIPITOR [Concomitant]
  9. LISINOPRIL [Concomitant]
  10. METFORMIN [Concomitant]
  11. MULTI-VITAMINS [Concomitant]
  12. PRILOSEC [Concomitant]
  13. PROZAC /00724401/ [Concomitant]
  14. ZOCOR [Concomitant]

REACTIONS (5)
  - ACCIDENTAL OVERDOSE [None]
  - BLOOD GLUCOSE ABNORMAL [None]
  - BONE FORMATION DECREASED [None]
  - SPINAL FUSION SURGERY [None]
  - SPINAL OPERATION [None]
